FAERS Safety Report 8090379-4 (Version None)
Quarter: 2012Q1

REPORT INFORMATION
  Report Type: 
  Country: None (occurrence: None)
  Receive Date: 20120129
  Receipt Date: 20111130
  Transmission Date: 20120608
  Serious: No
  Sender: FDA-Public Use
  Company Number: US-ABBOTT-11P-163-0879677-00

PATIENT
  Age: 57 Year
  Sex: Female

DRUGS (5)
  1. VITAMIN B-12 [Concomitant]
     Indication: PRODUCT USED FOR UNKNOWN INDICATION
  2. HUMIRA [Suspect]
     Indication: CROHN'S DISEASE
     Dosage: (160 MG, LOADING DOSE)
     Dates: start: 20111104, end: 20111104
  3. AMBIEN [Concomitant]
     Indication: PRODUCT USED FOR UNKNOWN INDICATION
     Dosage: AT BEDTIME AS NEEDED
  4. HUMIRA [Suspect]
  5. HUMIRA [Suspect]
     Dosage: (80 MG, SECOND LOADING DOSE)

REACTIONS (4)
  - NASAL CONGESTION [None]
  - PYREXIA [None]
  - DRY THROAT [None]
  - SECRETION DISCHARGE [None]
